FAERS Safety Report 16570621 (Version 1)
Quarter: 2019Q3

REPORT INFORMATION
  Report Type: Spontaneous
  Country: US (occurrence: US)
  Receive Date: 20190531
  Receipt Date: 20190531
  Transmission Date: 20191004
  Serious: No
  Sender: FDA-Public Use
  Company Number: None

PATIENT
  Age: 70 Year
  Sex: Male
  Weight: 79 kg

DRUGS (1)
  1. FELODIPINE. [Suspect]
     Active Substance: FELODIPINE
     Indication: HYPERTENSION
     Route: 048
     Dates: start: 20060530, end: 20181212

REACTIONS (4)
  - Swollen tongue [None]
  - Dyspnoea [None]
  - Swelling face [None]
  - Flushing [None]

NARRATIVE: CASE EVENT DATE: 20181210
